FAERS Safety Report 21976406 (Version 2)
Quarter: 2023Q1

REPORT INFORMATION
  Report Type: Spontaneous
  Country: US (occurrence: US)
  Receive Date: 20230210
  Receipt Date: 20230215
  Transmission Date: 20230417
  Serious: No
  Sender: FDA-Public Use
  Company Number: US-SANOFI-01483917

PATIENT
  Age: 65 Year
  Sex: Female

DRUGS (2)
  1. LANTUS [Suspect]
     Active Substance: INSULIN GLARGINE
     Indication: Type 1 diabetes mellitus
     Dosage: 16 U, QD
  2. LANTUS [Suspect]
     Active Substance: INSULIN GLARGINE
     Dosage: 18 IU, QD

REACTIONS (1)
  - Cough [Unknown]
